FAERS Safety Report 23645104 (Version 1)
Quarter: 2024Q1

REPORT INFORMATION
  Report Type: Spontaneous
  Country: FR (occurrence: FR)
  Receive Date: 20240318
  Receipt Date: 20240318
  Transmission Date: 20240409
  Serious: Yes (Life-Threatening, Hospitalization, Other)
  Sender: FDA-Public Use
  Company Number: FR-ROCHE-3510284

PATIENT
  Age: 48 Year
  Sex: Female

DRUGS (12)
  1. TEMOZOLOMIDE [Suspect]
     Active Substance: TEMOZOLOMIDE
     Indication: Pancreatic neuroendocrine tumour metastatic
     Dosage: 250 MILLIGRAM
     Route: 048
     Dates: start: 20230421, end: 2024
  2. PREDNISONE [Suspect]
     Active Substance: PREDNISONE
  3. BEVACIZUMAB [Suspect]
     Active Substance: BEVACIZUMAB
     Indication: Pancreatic neuroendocrine tumour metastatic
     Dosage: CUMULATIVE DOSE OF 4375 MILLIGRAM
     Route: 042
     Dates: start: 20230421, end: 20231006
  4. CAPECITABINE [Suspect]
     Active Substance: CAPECITABINE
     Indication: Pancreatic neuroendocrine tumour metastatic
     Dosage: 2500 MILLIGRAM
     Route: 048
     Dates: start: 20230421, end: 2024
  5. ATORVASTATIN [Concomitant]
     Active Substance: ATORVASTATIN
     Dosage: 1 TAB IN EVENING
  6. DAPAGLIFLOZIN [Concomitant]
     Active Substance: DAPAGLIFLOZIN
     Dosage: 10 MILLIGRAM
  7. BACTRIM [Concomitant]
     Active Substance: SULFAMETHOXAZOLE\TRIMETHOPRIM
  8. REPAGLINIDE [Concomitant]
     Active Substance: REPAGLINIDE
     Dosage: 0.5 MILLIGRAM, BID
  9. LANSOPRAZOLE [Concomitant]
     Active Substance: LANSOPRAZOLE
     Dosage: 30 MILLIGRAM
  10. HYDROCHLOROTHIAZIDE [Concomitant]
     Active Substance: HYDROCHLOROTHIAZIDE
     Dosage: 25 MILLIGRAM
  11. COVERAM [Concomitant]
     Active Substance: AMLODIPINE\PERINDOPRIL
     Dosage: 10/10MG
  12. PRAZOSIN [Concomitant]
     Active Substance: PRAZOSIN
     Dosage: 2.5 MILLIGRAM

REACTIONS (5)
  - Sepsis [Not Recovered/Not Resolved]
  - Escherichia urinary tract infection [Unknown]
  - Asthenia [Unknown]
  - Dyspnoea [Unknown]
  - Acute kidney injury [Not Recovered/Not Resolved]

NARRATIVE: CASE EVENT DATE: 20240118
